FAERS Safety Report 15934389 (Version 2)
Quarter: 2019Q1

REPORT INFORMATION
  Report Type: Spontaneous
  Country: IT (occurrence: IT)
  Receive Date: 20190207
  Receipt Date: 20190318
  Transmission Date: 20190417
  Serious: Yes (Other)
  Sender: FDA-Public Use
  Company Number: IT-MYLANLABS-2019M1010879

PATIENT
  Age: 58 Year
  Sex: Male

DRUGS (21)
  1. IMIPENEM AND CILASTATIN SODIUM [Suspect]
     Active Substance: CILASTATIN SODIUM\IMIPENEM
     Indication: ANTIBIOTIC THERAPY
     Dosage: 1500 MILLIGRAM, QD (500 MG, TID)
     Dates: start: 2017, end: 2017
  2. LINEZOLID. [Concomitant]
     Active Substance: LINEZOLID
     Indication: PNEUMONIA
     Dosage: 1200 MILLIGRAM, QD (600 MG, BID)
     Dates: start: 2017, end: 2017
  3. MORPHINE [Concomitant]
     Active Substance: MORPHINE
     Dosage: INCREASING DOSE IN THE LAST FEW DAYS
  4. TRAMADOL HYDROCHLORIDE. [Concomitant]
     Active Substance: TRAMADOL HYDROCHLORIDE
     Dosage: 100 MILLIGRAM, QD (50 MG, BID)
  5. HUMAN SERUM ALBUMIN [Concomitant]
     Active Substance: ALBUMIN HUMAN
     Dosage: ACCORDING TO RENAL FUNCTION AND CARDIOCIRCULATORY COMPENSATION
  6. DARBEPOETIN ALFA [Concomitant]
     Active Substance: DARBEPOETIN ALFA
     Dosage: 4 MICROGRAM, TIW
  7. LACTULOSE. [Concomitant]
     Active Substance: LACTULOSE
     Dosage: 6 DOSAGE FORM, QD (SIX TABLESPOONS DAILY)
     Route: 048
  8. FOLIC ACID. [Concomitant]
     Active Substance: FOLIC ACID
     Dosage: 5 MG, QD
  9. OXYGEN. [Concomitant]
     Active Substance: OXYGEN
     Indication: PNEUMONIA
     Dosage: UNK
     Dates: start: 2017, end: 2017
  10. ENTECAVIR. [Concomitant]
     Active Substance: ENTECAVIR
     Dosage: 0.5 MG, QD
  11. VANCOMYCIN [Suspect]
     Active Substance: VANCOMYCIN
     Indication: ANTIBIOTIC THERAPY
     Dosage: 1000 MILLIGRAM, QD
     Dates: start: 2017, end: 2017
  12. IMIPENEM AND CILASTATIN SODIUM [Suspect]
     Active Substance: CILASTATIN SODIUM\IMIPENEM
     Dosage: UNK
     Dates: start: 2017, end: 2017
  13. RABEPRAZOLE SODIUM. [Concomitant]
     Active Substance: RABEPRAZOLE SODIUM
     Dosage: 20 MG, QD
  14. RIFAXIMIN. [Concomitant]
     Active Substance: RIFAXIMIN
     Dosage: 400 MG, TID
  15. VANCOMYCIN [Suspect]
     Active Substance: VANCOMYCIN
     Dosage: UNK
     Dates: start: 2017, end: 2017
  16. KANRENOL [Concomitant]
     Active Substance: CANRENOATE POTASSIUM
     Dosage: ACCORDING TO RENAL FUNCTION AND CARDIOCIRCULATORY COMPENSATION
  17. TERLIPRESSIN [Concomitant]
     Active Substance: TERLIPRESSIN
     Dosage: ACCORDING TO RENAL FUNCTION
  18. FUROSEMIDE. [Concomitant]
     Active Substance: FUROSEMIDE
     Dosage: ACCORDING TO RENAL FUNCTION AND CARDIOCIRCULATORY COMPENSATION
  19. PROPRANOLOL HYDROCHLORIDE. [Concomitant]
     Active Substance: PROPRANOLOL HYDROCHLORIDE
     Dosage: 20 MG, BID
  20. PIPERACILLIN AND TAZOBACTAM [Concomitant]
     Active Substance: PIPERACILLIN SODIUM\TAZOBACTAM SODIUM
     Indication: PNEUMONIA
     Dosage: 2.25 MG FOUR TIMES A DAY
     Dates: start: 2017, end: 2017
  21. TRIMETON [Concomitant]
     Active Substance: CHLORPHENIRAMINE MALEATE
     Dosage: 10 MG, QD

REACTIONS (1)
  - Drug ineffective [Unknown]

NARRATIVE: CASE EVENT DATE: 2017
